FAERS Safety Report 4978558-3 (Version None)
Quarter: 2006Q2

REPORT INFORMATION
  Report Type: 
  Country: None (occurrence: None)
  Receive Date: 20060414
  Receipt Date: 20060404
  Transmission Date: 20061013
  Serious: Yes (Other)
  Sender: FDA-Public Use
  Company Number: 163-21880-06020132

PATIENT
  Age: 54 Year
  Sex: Female

DRUGS (4)
  1. REVLIMID [Suspect]
     Indication: MYELODYSPLASTIC SYNDROME
     Dosage: SEE IMAGE
     Route: 048
     Dates: start: 20060123, end: 20060310
  2. REVLIMID [Suspect]
     Indication: MYELODYSPLASTIC SYNDROME
     Dosage: SEE IMAGE
     Route: 048
     Dates: start: 20060329
  3. PROTONIX [Concomitant]
  4. FERROUS GLUCONATE [Concomitant]

REACTIONS (7)
  - ANGIONEUROTIC OEDEMA [None]
  - CONTUSION [None]
  - DIARRHOEA [None]
  - NEUTROPHIL COUNT DECREASED [None]
  - PLATELET COUNT DECREASED [None]
  - RASH PRURITIC [None]
  - WHITE BLOOD CELL COUNT DECREASED [None]
